FAERS Safety Report 19195418 (Version 3)
Quarter: 2021Q2

REPORT INFORMATION
  Report Type: Report from Study
  Country: CN (occurrence: CN)
  Receive Date: 20210429
  Receipt Date: 20210601
  Transmission Date: 20210717
  Serious: Yes (Hospitalization)
  Sender: FDA-Public Use
  Company Number: NVSC2021CN076354

PATIENT
  Age: 64 Year
  Sex: Female
  Weight: 64.5 kg

DRUGS (17)
  1. FERROUS SUCCINATE [Concomitant]
     Active Substance: FERROUS SUCCINATE
     Indication: HAEMOGLOBIN DECREASED
     Dosage: UNK
     Route: 065
     Dates: start: 20210403, end: 20210406
  2. VITAMIIN C [Concomitant]
     Active Substance: ASCORBIC ACID
     Indication: PYREXIA
     Dosage: UNK
     Route: 065
     Dates: start: 20210324, end: 20210324
  3. CEFIXIME. [Concomitant]
     Active Substance: CEFIXIME
     Indication: PNEUMONIA
     Dosage: UNK
     Route: 065
     Dates: start: 20210324, end: 20210328
  4. FOLIC ACID. [Concomitant]
     Active Substance: FOLIC ACID
     Indication: HAEMOGLOBIN DECREASED
     Dosage: UNK
     Route: 065
     Dates: start: 20210402, end: 20210405
  5. RIBOCICLIB. [Suspect]
     Active Substance: RIBOCICLIB
     Indication: BREAST CANCER
     Dosage: 400 MG, QD
     Route: 048
     Dates: start: 20190909
  6. COMPARATOR LETROZOLE [Suspect]
     Active Substance: LETROZOLE
     Indication: BREAST CANCER
     Dosage: 2.5 MG, QD
     Route: 048
     Dates: start: 20190909
  7. ESOMEPRAZOLE SODIUM. [Concomitant]
     Active Substance: ESOMEPRAZOLE SODIUM
     Indication: PYREXIA
     Dosage: UNK
     Route: 065
     Dates: start: 20210331, end: 20210331
  8. RECOMBINANT HUMAN ERYTHROPOIETIN [Concomitant]
     Active Substance: ERYTHROPOIETIN
     Indication: HAEMOGLOBIN DECREASED
     Dosage: UNK
     Route: 065
     Dates: start: 20210402, end: 20210405
  9. VITAMIIN C [Concomitant]
     Active Substance: ASCORBIC ACID
     Dosage: UNK
     Route: 065
     Dates: start: 20210331, end: 20210331
  10. VITAMIN B6 [Concomitant]
     Active Substance: PYRIDOXINE HYDROCHLORIDE
     Dosage: UNK
     Route: 065
     Dates: start: 20210401, end: 20210405
  11. CEFACLOR. [Concomitant]
     Active Substance: CEFACLOR
     Indication: PYREXIA
     Dosage: UNK
     Route: 065
     Dates: start: 20210330, end: 20210330
  12. AMBROXOL HYDROCHLORIDE [Concomitant]
     Active Substance: AMBROXOL HYDROCHLORIDE
     Indication: PNEUMONIA
     Dosage: UNK
     Route: 065
     Dates: start: 20210324, end: 20210324
  13. CEFEPIME HYDROCHLORIDE. [Concomitant]
     Active Substance: CEFEPIME HYDROCHLORIDE
     Indication: PNEUMONIA
     Dosage: UNK
     Route: 065
     Dates: start: 20210324, end: 20210324
  14. SILYMARIN [Concomitant]
     Active Substance: DIETARY SUPPLEMENT\HERBALS\MILK THISTLE
     Indication: DRUG-INDUCED LIVER INJURY
     Dosage: UNK
     Route: 065
     Dates: start: 20191122
  15. VITAMIN B6 [Concomitant]
     Active Substance: PYRIDOXINE HYDROCHLORIDE
     Indication: PYREXIA
     Dosage: UNK
     Route: 065
     Dates: start: 20210331, end: 20210331
  16. DIAMMONIUM GLYCYRRHIZINATE [Concomitant]
     Active Substance: HERBALS\DIAMMONIUM GLYCYRRHIZINATE
     Indication: DRUG-INDUCED LIVER INJURY
     Dosage: UNK
     Route: 065
     Dates: start: 20191122
  17. DOXOFYLLINE [Concomitant]
     Active Substance: DOXOFYLLINE
     Indication: PYREXIA
     Dosage: UNK
     Route: 065
     Dates: start: 20210331, end: 20210331

REACTIONS (1)
  - Pneumonia [Recovered/Resolved]

NARRATIVE: CASE EVENT DATE: 20210401
